FAERS Safety Report 4736709-X (Version None)
Quarter: 2005Q3

REPORT INFORMATION
  Report Type: 
  Country: None (occurrence: None)
  Receive Date: 20050805
  Receipt Date: 20050726
  Transmission Date: 20060218
  Serious: Yes (Hospitalization)
  Sender: FDA-Public Use
  Company Number: ZICO001245

PATIENT
  Age: 63 Year
  Sex: Male

DRUGS (3)
  1. PRIALT [Suspect]
     Dosage: 0.121 MCG/HR INTRATHECAL
     Route: 037
     Dates: start: 20050627, end: 20050715
  2. MORPHINE (MORPHINE HYDROCHLORIDE) [Concomitant]
  3. MARCAINE [Concomitant]

REACTIONS (2)
  - CATHETER RELATED COMPLICATION [None]
  - MENINGITIS [None]
